FAERS Safety Report 7389916-4 (Version None)
Quarter: 2011Q1

REPORT INFORMATION
  Report Type: 
  Country: None (occurrence: None)
  Receive Date: 20110325
  Receipt Date: 20110311
  Transmission Date: 20110831
  Serious: Yes (Other)
  Sender: FDA-Public Use
  Company Number: 2010004132

PATIENT
  Age: 78 Year
  Sex: Female
  Weight: 64.3 kg

DRUGS (2)
  1. ERLOTINIB (ERLOTINIB) (TABLET) (ERLOTINIB) [Suspect]
     Indication: ADENOCARCINOMA PANCREAS
     Dosage: (150 MG, QD) , ORAL
     Route: 048
     Dates: start: 20100913
  2. GDC-0449 [Suspect]
     Indication: ADENOCARCINOMA PANCREAS
     Dosage: (150 MG, QD), ORAL
     Route: 048
     Dates: start: 20100913

REACTIONS (2)
  - DIARRHOEA [None]
  - HYPONATRAEMIA [None]
